FAERS Safety Report 19043309 (Version 1)
Quarter: 2021Q1

REPORT INFORMATION
  Report Type: Spontaneous
  Country: US (occurrence: US)
  Receive Date: 20210322
  Receipt Date: 20210322
  Transmission Date: 20210420
  Serious: Yes (Other)
  Sender: FDA-Public Use
  Company Number: None

PATIENT
  Sex: Female

DRUGS (2)
  1. DUONEB [Suspect]
     Active Substance: ALBUTEROL SULFATE\IPRATROPIUM BROMIDE
  2. ALBUTEROL. [Suspect]
     Active Substance: ALBUTEROL

REACTIONS (2)
  - Drug ineffective [None]
  - Dyspnoea [None]
